FAERS Safety Report 12988910 (Version 3)
Quarter: 2017Q1

REPORT INFORMATION
  Report Type: Spontaneous
  Country: US (occurrence: US)
  Receive Date: 20161201
  Receipt Date: 20170315
  Transmission Date: 20170428
  Serious: No
  Sender: FDA-Public Use
  Company Number: US-ELI_LILLY_AND_COMPANY-US201607012991

PATIENT
  Sex: Female
  Weight: 91 kg

DRUGS (2)
  1. CYMBALTA [Suspect]
     Active Substance: DULOXETINE HYDROCHLORIDE
     Indication: PAIN
  2. CYMBALTA [Suspect]
     Active Substance: DULOXETINE HYDROCHLORIDE
     Indication: NEUROPATHY PERIPHERAL
     Dosage: 60 MG, EACH EVENING
     Route: 048
     Dates: start: 20050321, end: 200803

REACTIONS (15)
  - Insomnia [Unknown]
  - Confusional state [Unknown]
  - Intentional product misuse [Unknown]
  - Somnolence [Unknown]
  - Tremor [Unknown]
  - Depression [Unknown]
  - Paraesthesia [Unknown]
  - Drug withdrawal syndrome [Unknown]
  - Hyperhidrosis [Unknown]
  - Dysphoria [Unknown]
  - Snoring [Unknown]
  - Irritability [Unknown]
  - Headache [Unknown]
  - Fatigue [Unknown]
  - Agitation [Unknown]
